FAERS Safety Report 7492564-9 (Version None)
Quarter: 2011Q2

REPORT INFORMATION
  Report Type: 
  Country: None (occurrence: None)
  Receive Date: 20110519
  Receipt Date: 20110505
  Transmission Date: 20111010
  Serious: Yes (Other)
  Sender: FDA-Public Use
  Company Number: US-BAYER-2011-040155

PATIENT
  Sex: Female

DRUGS (1)
  1. ALEVE (CAPLET) [Suspect]
     Indication: ABDOMINAL PAIN
     Route: 048

REACTIONS (2)
  - LOSS OF CONSCIOUSNESS [None]
  - DIZZINESS [None]
